FAERS Safety Report 14208435 (Version 1)
Quarter: 2017Q4

REPORT INFORMATION
  Report Type: Other
  Country: US (occurrence: US)
  Receive Date: 20171121
  Receipt Date: 20171121
  Transmission Date: 20180321
  Serious: Yes (Other)
  Sender: FDA-Public Use
  Company Number: US-VELOXIS PHARMACEUTICALS-2034757

PATIENT
  Sex: Male

DRUGS (4)
  1. SOFOSBUVIR [Concomitant]
     Active Substance: SOFOSBUVIR
  2. PREDNISONE. [Suspect]
     Active Substance: PREDNISONE
  3. DACLATASVIR. [Concomitant]
     Active Substance: DACLATASVIR
  4. ENVARSUS XR [Suspect]
     Active Substance: TACROLIMUS
     Indication: RENAL TRANSPLANT

REACTIONS (2)
  - Hepatocellular carcinoma [Unknown]
  - Chronic hepatitis C [Unknown]
